FAERS Safety Report 6897267-7 (Version None)
Quarter: 2010Q3

REPORT INFORMATION
  Report Type: 
  Country: None (occurrence: None)
  Receive Date: 20100802
  Receipt Date: 20070604
  Transmission Date: 20110219
  Serious: No
  Sender: FDA-Public Use
  Company Number: US-PFIZER INC-2007020404

PATIENT
  Sex: Male
  Weight: 63.5 kg

DRUGS (8)
  1. LYRICA [Suspect]
     Indication: PAIN IN EXTREMITY
     Dates: start: 20070308
  2. KLONOPIN [Concomitant]
  3. DIAZEPAM [Concomitant]
  4. XANAX [Concomitant]
  5. ZOLOFT [Concomitant]
  6. CARDIOVASCULAR SYSTEM DRUGS [Concomitant]
     Indication: CORONARY ARTERY DISEASE
  7. NORTAB [Concomitant]
  8. DRUG, UNSPECIFIED [Concomitant]

REACTIONS (4)
  - BALANCE DISORDER [None]
  - DIZZINESS [None]
  - FATIGUE [None]
  - PAIN [None]
